FAERS Safety Report 16685906 (Version 3)
Quarter: 2020Q3

REPORT INFORMATION
  Report Type: Spontaneous
  Country: DE (occurrence: DE)
  Receive Date: 20190809
  Receipt Date: 20200826
  Transmission Date: 20201102
  Serious: Yes (Death, Other)
  Sender: FDA-Public Use
  Company Number: DE-009507513-1908DEU002629

PATIENT
  Age: 73 Year
  Sex: Female
  Weight: 76 kg

DRUGS (6)
  1. ZOPICLONE [Interacting]
     Active Substance: ZOPICLONE
     Dosage: UNK
  2. METOPROLOL. [Interacting]
     Active Substance: METOPROLOL
     Dosage: UNK
  3. AMLODIPINE [Interacting]
     Active Substance: AMLODIPINE BESYLATE
     Dosage: UNK
  4. CANDESARTAN. [Interacting]
     Active Substance: CANDESARTAN
     Dosage: UNK
  5. MIRTAZAPINE. [Suspect]
     Active Substance: MIRTAZAPINE
     Dosage: UNK
     Route: 048
  6. FENTANYL. [Interacting]
     Active Substance: FENTANYL
     Dosage: 50 MICROG/H, EACH SCAPULA
     Route: 062

REACTIONS (3)
  - Drug interaction [Fatal]
  - Asphyxia [Fatal]
  - Toxicity to various agents [Fatal]
